FAERS Safety Report 10553485 (Version 1)
Quarter: 2014Q4

REPORT INFORMATION
  Report Type: Spontaneous
  Country: US (occurrence: None)
  Receive Date: 20141029
  Receipt Date: 20141029
  Transmission Date: 20150529
  Serious: Yes (Death)
  Sender: FDA-Public Use
  Company Number: None

PATIENT
  Age: 49 Year
  Sex: Male

DRUGS (1)
  1. TEMOZOLOMIDE. [Suspect]
     Active Substance: TEMOZOLOMIDE
     Indication: PRODUCT USED FOR UNKNOWN INDICATION
     Dosage: 140 MG DAILY (TOTAL DOSE 390 MG) PO
     Route: 048
     Dates: start: 20140718, end: 20140908

REACTIONS (2)
  - Malaise [None]
  - Vomiting [None]

NARRATIVE: CASE EVENT DATE: 20140908
